FAERS Safety Report 18562957 (Version 2)
Quarter: 2023Q4

REPORT INFORMATION
  Report Type: Spontaneous
  Country: US (occurrence: None)
  Receive Date: 20201130
  Receipt Date: 20231127
  Transmission Date: 20240110
  Serious: No
  Sender: FDA-Public Use
  Company Number: US-ROCHE-2609615

PATIENT
  Sex: Male

DRUGS (1)
  1. LUCENTIS [Suspect]
     Active Substance: RANIBIZUMAB
     Indication: Macular degeneration
     Dosage: INJECT 0.3 MG INTRAVITREALLY INTO RIGHT EYE EVERY 6 WEEKS BY MD OFFICE.
     Route: 050

REACTIONS (2)
  - Off label use [Unknown]
  - No adverse event [Unknown]
